FAERS Safety Report 6698532-9 (Version None)
Quarter: 2010Q2

REPORT INFORMATION
  Report Type: 
  Country: None (occurrence: None)
  Receive Date: 20100427
  Receipt Date: 20100422
  Transmission Date: 20101027
  Serious: Yes (Hospitalization)
  Sender: FDA-Public Use
  Company Number: GXKR2009DE05571

PATIENT
  Age: 71 Year
  Sex: Female
  Weight: 82 kg

DRUGS (7)
  1. SIMVAHEXAL (NGX) [Suspect]
     Indication: CORONARY ARTERY DISEASE
     Dosage: 40 MG, QD
     Route: 048
     Dates: start: 20081207, end: 20090106
  2. HYDROCHLOROTHIAZIDE [Interacting]
     Indication: HYPERTENSION
     Dosage: 12.5 MG, QD
     Route: 048
     Dates: start: 20060101
  3. ACCUPRO [Concomitant]
     Indication: HYPERTENSION
     Dosage: 10 MG, BID
     Route: 048
  4. ACETYLSALICYLIC ACID [Concomitant]
     Indication: CORONARY ARTERY DISEASE
     Dosage: 100 MG, QD
     Route: 048
  5. CITALOPRAM HYDROBROMIDE [Concomitant]
     Indication: DEPRESSION
     Dosage: 10 MG, QD
     Route: 048
  6. ISCOVER [Concomitant]
     Indication: ACUTE MYOCARDIAL INFARCTION
     Dosage: 75 MG, QD
     Route: 048
  7. METOHEXAL [Concomitant]
     Indication: HYPERTENSION
     Dosage: 95 MG, QD
     Route: 048
     Dates: start: 20081201

REACTIONS (1)
  - RHABDOMYOLYSIS [None]
